FAERS Safety Report 8445355-6 (Version None)
Quarter: 2012Q2

REPORT INFORMATION
  Report Type: 
  Country: None (occurrence: None)
  Receive Date: 20120618
  Receipt Date: 20120405
  Transmission Date: 20120825
  Serious: No
  Sender: FDA-Public Use
  Company Number: US-TEVA-332051USA

PATIENT
  Sex: Male

DRUGS (4)
  1. FENTORA [Suspect]
     Indication: PAIN
     Route: 002
  2. MORPHINE [Suspect]
  3. DIAZEPAM [Suspect]
     Indication: PAIN
  4. OXYCODONE HYDROCHLORIDE [Suspect]
     Indication: PAIN

REACTIONS (3)
  - OVERDOSE [None]
  - ABNORMAL BEHAVIOUR [None]
  - OFF LABEL USE [None]
